FAERS Safety Report 23401991 (Version 2)
Quarter: 2025Q2

REPORT INFORMATION
  Report Type: Report from Study
  Country: US (occurrence: US)
  Receive Date: 20240115
  Receipt Date: 20250510
  Transmission Date: 20250717
  Serious: No
  Sender: SANOFI AVENTIS
  Company Number: US-SA-SAC20240111001353

PATIENT
  Age: 63 Year
  Sex: Male
  Weight: 96.6 kg

DRUGS (29)
  1. DUPILUMAB [Suspect]
     Active Substance: DUPILUMAB
     Indication: Dermatitis atopic
     Dosage: 300 MG, QOW
     Route: 058
     Dates: start: 2018
  2. DUPILUMAB [Suspect]
     Active Substance: DUPILUMAB
     Indication: Asthma
  3. TYLENOL [Suspect]
     Active Substance: ACETAMINOPHEN
  4. MOUNJARO [Concomitant]
     Active Substance: TIRZEPATIDE
  5. VITAMIN B12 [Concomitant]
     Active Substance: CYANOCOBALAMIN
  6. LACTOBACILLUS ACIDOPHILUS [Concomitant]
     Active Substance: LACTOBACILLUS ACIDOPHILUS
  7. ASPIRIN [Concomitant]
     Active Substance: ASPIRIN
  8. FLUTICASONE [Concomitant]
     Active Substance: FLUTICASONE
  9. TESTOSTERONE [Concomitant]
     Active Substance: TESTOSTERONE
  10. DICLOFENAC [Concomitant]
     Active Substance: DICLOFENAC
  11. FISH OIL [Concomitant]
     Active Substance: FISH OIL
  12. AZELASTINE [Concomitant]
     Active Substance: AZELASTINE
  13. BUPROPION [Concomitant]
     Active Substance: BUPROPION
  14. GABAPENTIN [Concomitant]
     Active Substance: GABAPENTIN
  15. QULIPTA [Concomitant]
     Active Substance: ATOGEPANT
  16. ALBUTEROL [Concomitant]
     Active Substance: ALBUTEROL
  17. SEROQUEL [Concomitant]
     Active Substance: QUETIAPINE FUMARATE
  18. VITAMIN C [Concomitant]
     Active Substance: ASCORBIC ACID
  19. VIAGRA [Concomitant]
     Active Substance: SILDENAFIL CITRATE
  20. OMEPRAZOLE [Concomitant]
     Active Substance: OMEPRAZOLE
  21. BREZTRI [Concomitant]
     Active Substance: BUDESONIDE\FORMOTEROL\GLYCOPYRROLATE
  22. OXCARBAZEPINE [Concomitant]
     Active Substance: OXCARBAZEPINE
  23. PROPRANOLOL [Concomitant]
     Active Substance: PROPRANOLOL HYDROCHLORIDE
  24. VILAZODONE [Concomitant]
     Active Substance: VILAZODONE
  25. VITAMINS [Concomitant]
     Active Substance: VITAMINS
  26. ZYRTEC [Concomitant]
     Active Substance: CETIRIZINE HYDROCHLORIDE
  27. FINASTERIDE [Concomitant]
     Active Substance: FINASTERIDE
  28. TAMSULOSIN [Concomitant]
     Active Substance: TAMSULOSIN
  29. SIMVASTATIN [Concomitant]
     Active Substance: SIMVASTATIN

REACTIONS (3)
  - Arthritis [Unknown]
  - Somnolence [Unknown]
  - Upper respiratory tract infection [Not Recovered/Not Resolved]

NARRATIVE: CASE EVENT DATE: 20230101
